FAERS Safety Report 19594460 (Version 2)
Quarter: 2022Q3

REPORT INFORMATION
  Report Type: Spontaneous
  Country: US (occurrence: US)
  Receive Date: 20210722
  Receipt Date: 20220912
  Transmission Date: 20221027
  Serious: Yes (Death, Other)
  Sender: FDA-Public Use
  Company Number: US-SA-SAC20210721000357

PATIENT
  Age: 54 Year
  Sex: Female

DRUGS (1)
  1. ZANTAC [Suspect]
     Active Substance: RANITIDINE HYDROCHLORIDE
     Indication: Dyspepsia
     Dosage: UNK UNK, PRN (UNKNOWN AT THIS TIME FREQUENCY; OCCASIONAL)
     Dates: start: 200901, end: 201801

REACTIONS (1)
  - Breast cancer stage IV [Fatal]

NARRATIVE: CASE EVENT DATE: 20180601
